FAERS Safety Report 9015475 (Version 1)
Quarter: 2013Q1

REPORT INFORMATION
  Report Type: Spontaneous
  Country: ES (occurrence: ES)
  Receive Date: 20130116
  Receipt Date: 20130116
  Transmission Date: 20140127
  Serious: Yes (Death, Life-Threatening, Hospitalization)
  Sender: FDA-Public Use
  Company Number: ES-SANOFI-AVENTIS-2013SA002389

PATIENT
  Age: 80 Year
  Sex: Male

DRUGS (6)
  1. SEGURIL [Suspect]
     Indication: CARDIAC FAILURE
     Route: 048
     Dates: start: 200909, end: 20100927
  2. ALDACTONE [Interacting]
     Indication: CARDIAC FAILURE
     Route: 048
     Dates: end: 20100927
  3. ENALAPRIL [Interacting]
     Indication: HYPERTENSION
     Route: 048
     Dates: start: 2006, end: 20100927
  4. COROPRES [Interacting]
     Indication: PRODUCT USED FOR UNKNOWN INDICATION
     Route: 048
     Dates: start: 200910, end: 20100924
  5. TROMALYT [Concomitant]
     Indication: PROPHYLAXIS
     Route: 048
     Dates: start: 201005, end: 20100924
  6. ACFOL [Concomitant]
     Route: 048
     Dates: end: 20100924

REACTIONS (3)
  - Hyperkalaemia [Recovered/Resolved]
  - Drug interaction [Unknown]
  - Renal failure acute [Recovered/Resolved]
